FAERS Safety Report 5603781-4 (Version None)
Quarter: 2008Q1

REPORT INFORMATION
  Report Type: 
  Country: None (occurrence: None)
  Receive Date: 20080122
  Receipt Date: 20080107
  Transmission Date: 20080703
  Serious: Yes (Other)
  Sender: FDA-Public Use
  Company Number: PAR_01826_2007

PATIENT
  Age: 78 Year
  Sex: Male

DRUGS (2)
  1. IBUPROFEN [Suspect]
     Indication: ARTHRALGIA
     Dosage: DF ORAL
     Route: 048
  2. BISOPROLOL [Concomitant]

REACTIONS (7)
  - BLOOD IMMUNOGLOBULIN E INCREASED [None]
  - CONFUSIONAL STATE [None]
  - DRUG HYPERSENSITIVITY [None]
  - LEUKOCYTOSIS [None]
  - MENINGITIS ASEPTIC [None]
  - MUSCULOSKELETAL STIFFNESS [None]
  - SOMNOLENCE [None]
